FAERS Safety Report 7430537-2 (Version None)
Quarter: 2011Q2

REPORT INFORMATION
  Report Type: 
  Country: None (occurrence: None)
  Receive Date: 20110421
  Receipt Date: 20100319
  Transmission Date: 20111010
  Serious: No
  Sender: FDA-Public Use
  Company Number: US-ASTRAZENECA-2010SE12313

PATIENT
  Age: 49 Year
  Sex: Female
  Weight: 79.4 kg

DRUGS (6)
  1. METOPROLOL SUCCINATE [Suspect]
     Route: 048
     Dates: start: 20100318
  2. ARIMIDEX [Concomitant]
  3. XANAX [Concomitant]
  4. METOPROLOL SUCCINATE [Suspect]
     Indication: PALPITATIONS
     Route: 048
     Dates: start: 20100304, end: 20100317
  5. SYNTHROID [Concomitant]
  6. LUPRON [Concomitant]

REACTIONS (3)
  - PALPITATIONS [None]
  - DRUG INEFFECTIVE [None]
  - BLOOD PRESSURE INCREASED [None]
